FAERS Safety Report 17704836 (Version 1)
Quarter: 2020Q2

REPORT INFORMATION
  Report Type: Spontaneous
  Country: US (occurrence: US)
  Receive Date: 20200424
  Receipt Date: 20200424
  Transmission Date: 20200714
  Serious: No
  Sender: FDA-Public Use
  Company Number: US-SA-2020SA102349

PATIENT
  Age: 21 Year
  Sex: Male

DRUGS (1)
  1. DUPIXENT [Suspect]
     Active Substance: DUPILUMAB
     Indication: NASAL POLYPS
     Dosage: 300 MG, QOW
     Route: 058
     Dates: start: 20190801

REACTIONS (4)
  - Influenza [Recovered/Resolved]
  - Unevaluable event [Unknown]
  - Dry eye [Recovering/Resolving]
  - Superficial injury of eye [Recovering/Resolving]

NARRATIVE: CASE EVENT DATE: 202001
